FAERS Safety Report 8366109-5 (Version None)
Quarter: 2012Q2

REPORT INFORMATION
  Report Type: 
  Country: None (occurrence: None)
  Receive Date: 20120517
  Receipt Date: 20120509
  Transmission Date: 20120825
  Serious: Yes (Hospitalization)
  Sender: FDA-Public Use
  Company Number: FR-UCBSA-057087

PATIENT
  Age: 51 Year
  Sex: Male

DRUGS (3)
  1. TEGRETOL [Suspect]
     Route: 048
     Dates: start: 20110802, end: 20111102
  2. DEPAKENE [Suspect]
     Route: 048
     Dates: end: 20110801
  3. KEPPRA [Suspect]
     Route: 048

REACTIONS (4)
  - TRANSAMINASES INCREASED [None]
  - CHOLESTASIS [None]
  - TUBULOINTERSTITIAL NEPHRITIS [None]
  - RENAL TUBULAR NECROSIS [None]
